FAERS Safety Report 8422086 (Version 10)
Quarter: 2013Q2

REPORT INFORMATION
  Report Type: Report from Study
  Country: DE (occurrence: DE)
  Receive Date: 20120223
  Receipt Date: 20130515
  Transmission Date: 20140414
  Serious: Yes (Hospitalization)
  Sender: FDA-Public Use
  Company Number: DE-UCBSA-051259

PATIENT
  Age: 71 Year
  Sex: Male
  Weight: 75 kg

DRUGS (22)
  1. PK MERZ [Suspect]
     Indication: PARKINSON^S DISEASE
     Dates: start: 20030730
  2. LYRICA [Concomitant]
     Indication: POLYNEUROPATHY
     Dates: start: 201201
  3. LYRICA [Concomitant]
     Indication: POLYNEUROPATHY
     Dates: start: 20050622, end: 201201
  4. LYRICA [Concomitant]
     Indication: POLYNEUROPATHY
     Dates: start: 20050203, end: 201201
  5. PIRACETAM NEURAX GRAN [Concomitant]
     Indication: COGNITIVE DISORDER
     Dates: start: 20051110, end: 201201
  6. PIRACETAM NEURAX GRAN [Concomitant]
     Indication: COGNITIVE DISORDER
     Dates: start: 20130115
  7. CLOPIDOGREL RATIOPH [Concomitant]
     Indication: PROPHYLAXIS
     Dates: start: 20100525, end: 201201
  8. FOSINORM [Concomitant]
     Indication: HYPERTENSION
     Dosage: 10 MG TAB:OTHER1/2
     Dates: start: 20120219
  9. FOSINORM [Concomitant]
     Indication: HYPERTENSION
     Dates: start: 201201, end: 20120218
  10. FOSINORM [Concomitant]
     Indication: HYPERTENSION
     Dosage: FREQ: OTHER 1/2
     Dates: start: 20101213, end: 2011
  11. GLIBENCLAMID SANDOZ [Concomitant]
     Indication: DIABETES MELLITUS
     Dosage: FREQ: OTHER 1/2
     Dates: start: 20101213
  12. BELOC ZOK [Concomitant]
     Indication: HYPERTENSION
     Dosage: 95 MG TAB TAKEN AS:OTHER 1/2-0-1/2
     Dates: start: 20120211
  13. BELOC ZOK [Concomitant]
     Indication: HYPERTENSION
     Dosage: 95 MG TAB TAKEN AS 1-0-1/2-0
     Dates: start: 201201, end: 20120210
  14. LEVODOPA [Concomitant]
  15. DABIGATRAN [Concomitant]
     Indication: CEREBROVASCULAR ACCIDENT
     Dates: start: 201201
  16. NEUPRO [Suspect]
     Indication: PARKINSON^S DISEASE
     Route: 062
     Dates: start: 20110824
  17. NEUPRO [Suspect]
     Indication: PARKINSON^S DISEASE
     Route: 062
     Dates: start: 20110317, end: 20110823
  18. NEUPRO [Suspect]
     Indication: PARKINSON^S DISEASE
     Route: 062
     Dates: start: 20101213, end: 20110316
  19. LEVODOPA RATIO COMP [Suspect]
     Indication: PARKINSON^S DISEASE
     Dates: start: 20120224
  20. LEVODOPA RATIO COMP [Suspect]
     Indication: PARKINSON^S DISEASE
     Dosage: 100/25 MG
     Dates: start: 20100526, end: 20120224
  21. LEVODOPA RATIO COMP [Suspect]
     Indication: PARKINSON^S DISEASE
     Dosage: 100/25MG OTHER  1; - ; 1
     Dates: start: 20051111, end: 20100525
  22. LEVODOPA RATIO COMP [Suspect]
     Indication: PARKINSON^S DISEASE
     Dosage: 100/25 MG.
     Dates: start: 20050224, end: 20051110

REACTIONS (2)
  - Ischaemic stroke [Recovered/Resolved]
  - Parkinson^s disease [Unknown]
